FAERS Safety Report 14616299 (Version 2)
Quarter: 2018Q2

REPORT INFORMATION
  Report Type: Spontaneous
  Country: US (occurrence: US)
  Receive Date: 20180309
  Receipt Date: 20180507
  Transmission Date: 20180711
  Serious: Yes (Other)
  Sender: FDA-Public Use
  Company Number: US-PFIZER INC-2018095470

PATIENT

DRUGS (2)
  1. ADVIL [Suspect]
     Active Substance: IBUPROFEN
     Indication: MUSCLE SPASMS
  2. ADVIL [Suspect]
     Active Substance: IBUPROFEN
     Indication: PAIN IN EXTREMITY
     Dosage: 1200 MG, DAILY

REACTIONS (6)
  - Somnolence [Unknown]
  - Myopathy [Unknown]
  - Neuropathy peripheral [Unknown]
  - Hallucination, auditory [Unknown]
  - Decubitus ulcer [Unknown]
  - Dizziness [Unknown]
